FAERS Safety Report 13119348 (Version 3)
Quarter: 2017Q1

REPORT INFORMATION
  Report Type: Spontaneous
  Country: US (occurrence: US)
  Receive Date: 20170116
  Receipt Date: 20170220
  Transmission Date: 20170428
  Serious: Yes (Other)
  Sender: FDA-Public Use
  Company Number: US-DSJP-DSU-2017-100896

PATIENT

DRUGS (1)
  1. WELCHOL [Suspect]
     Active Substance: COLESEVELAM HYDROCHLORIDE
     Indication: HYPERCHOLESTEROLAEMIA
     Dosage: 3.75 G, QD
     Route: 048
     Dates: start: 201701, end: 201701

REACTIONS (3)
  - Limb reduction defect [Not Recovered/Not Resolved]
  - Muscle spasms [Recovered/Resolved]
  - Regurgitation [Unknown]

NARRATIVE: CASE EVENT DATE: 201701
